FAERS Safety Report 12803987 (Version 1)
Quarter: 2016Q4

REPORT INFORMATION
  Report Type: Spontaneous
  Country: DE (occurrence: DE)
  Receive Date: 20161003
  Receipt Date: 20161003
  Transmission Date: 20170207
  Serious: Yes (Other)
  Sender: FDA-Public Use
  Company Number: DE-MYLANLABS-2016M1041790

PATIENT

DRUGS (3)
  1. FEMIBION                           /07499601/ [Concomitant]
     Indication: VITAMIN SUPPLEMENTATION
     Dosage: UNK
     Route: 064
     Dates: start: 20151201, end: 20160606
  2. VENLAFAXINE [Suspect]
     Active Substance: VENLAFAXINE HYDROCHLORIDE
     Indication: DEPRESSION
     Dosage: UNK (150 [MG/D ]/ REDUCTION IN LAST TRIMESTER TO 75 MG/D)
     Route: 064
     Dates: start: 20150913, end: 20160606
  3. VOMEX A [Suspect]
     Active Substance: DIMENHYDRINATE
     Indication: VOMITING IN PREGNANCY
     Dosage: UNK (150 [MG/D ]/ DOSAGE MAX. 150 MG/D. LONG TERM USE, BUT FREQUENCY NOT KNOWN)
     Route: 064

REACTIONS (2)
  - Pyloric stenosis [Recovered/Resolved with Sequelae]
  - Foetal exposure during pregnancy [Unknown]
